FAERS Safety Report 7093634-X (Version None)
Quarter: 2010Q4

REPORT INFORMATION
  Report Type: 
  Country: None (occurrence: None)
  Receive Date: 20101110
  Receipt Date: 20091013
  Transmission Date: 20110411
  Serious: No
  Sender: FDA-Public Use
  Company Number: US-KINGPHARMUSA00001-K200901268

PATIENT
  Age: 80 Year
  Sex: Female

DRUGS (1)
  1. FLECTOR [Suspect]
     Dosage: 1 PATCH, SINGLE
     Route: 061
     Dates: start: 20091012

REACTIONS (1)
  - SOMNOLENCE [None]
